FAERS Safety Report 5523899-4 (Version None)
Quarter: 2007Q4

REPORT INFORMATION
  Report Type: 
  Country: None (occurrence: None)
  Receive Date: 20071121
  Receipt Date: 20071116
  Transmission Date: 20080405
  Serious: Yes (Hospitalization)
  Sender: FDA-Public Use
  Company Number: US-SHR-US-2007-026569

PATIENT
  Age: 58 Year
  Sex: Male

DRUGS (3)
  1. BETASERON [Suspect]
     Indication: MULTIPLE SCLEROSIS
     Route: 058
     Dates: start: 20020612, end: 20060128
  2. BETASERON [Suspect]
     Dosage: 8 MIU, UNK
     Route: 058
     Dates: start: 20060630, end: 20070702
  3. BETASERON [Suspect]
     Dosage: UNK, 1 DOSE
     Route: 058
     Dates: start: 19990101, end: 19990101

REACTIONS (6)
  - CYSTITIS [None]
  - HEMIPLEGIA [None]
  - INJECTION SITE BRUISING [None]
  - INJECTION SITE PAIN [None]
  - MOBILITY DECREASED [None]
  - WRONG TECHNIQUE IN DRUG USAGE PROCESS [None]
